FAERS Safety Report 8927060 (Version 2)
Quarter: 2012Q4

REPORT INFORMATION
  Report Type: 
  Country: US (occurrence: US)
  Receive Date: 20121127
  Receipt Date: 20121228
  Transmission Date: 20130627
  Serious: No
  Sender: FDA-Public Use
  Company Number: US-009507513-1211USA010543

PATIENT
  Age: 52 Year
  Sex: Male

DRUGS (2)
  1. PEGINTRON [Suspect]
     Indication: HEPATITIS C
     Dosage: 120 Microgram per 0.5 ml, qw
     Route: 058
     Dates: start: 201210
  2. RIBAPAK [Suspect]
     Indication: HEPATITIS C
     Dosage: 1000 mg qd
     Dates: start: 201210

REACTIONS (4)
  - Pneumonia viral [Unknown]
  - Asthenia [Unknown]
  - Dyspnoea [Unknown]
  - Irritability [Unknown]
